FAERS Safety Report 7821762-7 (Version None)
Quarter: 2011Q4

REPORT INFORMATION
  Report Type: 
  Country: None (occurrence: None)
  Receive Date: 20111018
  Receipt Date: 20110315
  Transmission Date: 20120403
  Serious: No
  Sender: FDA-Public Use
  Company Number: US-ASTRAZENECA-2010SE61436

PATIENT
  Age: 62 Year
  Sex: Female

DRUGS (3)
  1. SYMBICORT [Suspect]
     Route: 055
  2. SYMBICORT [Suspect]
     Dosage: CUT DOWN TO 1 PUFF
     Route: 055
     Dates: start: 20110215
  3. SYMBICORT [Suspect]
     Route: 055
     Dates: end: 20110227

REACTIONS (11)
  - INCORRECT DOSE ADMINISTERED [None]
  - DRUG DOSE OMISSION [None]
  - LUNG DISORDER [None]
  - COUGH [None]
  - HEADACHE [None]
  - PYREXIA [None]
  - INFLUENZA [None]
  - WHEEZING [None]
  - SINUS DISORDER [None]
  - RHINORRHOEA [None]
  - MALAISE [None]
